FAERS Safety Report 4505234-3 (Version None)
Quarter: 2004Q4

REPORT INFORMATION
  Report Type: 
  Country: None (occurrence: None)
  Receive Date: 20041116
  Receipt Date: 20041028
  Transmission Date: 20050328
  Serious: Yes (Hospitalization)
  Sender: FDA-Public Use
  Company Number: DSA_25305_2004

PATIENT
  Age: 74 Year
  Sex: Female

DRUGS (6)
  1. TAVOR [Suspect]
     Dosage: 1 MG Q DAY PO
     Route: 048
     Dates: start: 20030819
  2. ENALARPIL [Suspect]
     Dosage: DF Q DAY PO
     Route: 048
  3. ENALARPIL [Suspect]
     Dosage: 5 MG Q  DAY PO
     Route: 048
     Dates: start: 20030820
  4. REMERGIL [Suspect]
     Dosage: 30 MG Q DAY PO
     Route: 048
     Dates: start: 20030814
  5. RISPERDAL [Suspect]
     Dosage: 1 MG Q DAY PO
     Route: 048
     Dates: start: 20040820
  6. RISPERDAL [Suspect]
     Dosage: 0.5 MG Q DAY PO
     Route: 048
     Dates: start: 20030819, end: 20030819

REACTIONS (7)
  - CEREBRAL ISCHAEMIA [None]
  - DEHYDRATION [None]
  - DEPRESSION [None]
  - DIZZINESS [None]
  - DRUG INTERACTION [None]
  - HYPOTENSION [None]
  - SOMNOLENCE [None]
